FAERS Safety Report 6148290-1 (Version None)
Quarter: 2009Q2

REPORT INFORMATION
  Report Type: 
  Country: None (occurrence: None)
  Receive Date: 20090408
  Receipt Date: 20090403
  Transmission Date: 20091009
  Serious: Yes (Hospitalization)
  Sender: FDA-Public Use
  Company Number: US-KINGPHARMUSA00001-K200900191

PATIENT
  Age: 92 Year
  Sex: Female
  Weight: 70 kg

DRUGS (7)
  1. ALTACE [Suspect]
     Dosage: 70 MG, QD
     Route: 048
     Dates: start: 20090209, end: 20090209
  2. LEVOXYL [Suspect]
     Dosage: 350 MCG, QD
     Route: 048
     Dates: start: 20090209, end: 20090209
  3. TAPAZOLE [Suspect]
     Dosage: 10500 MG, QD
     Route: 048
     Dates: start: 20090209, end: 20090209
  4. CLOPIDOGREL [Suspect]
     Dosage: 525 MG, QD
     Route: 048
     Dates: start: 20090201, end: 20090201
  5. METOHEXAL                          /00376902/ [Suspect]
     Dosage: 2100 MG, QD
     Route: 048
     Dates: start: 20090209
  6. OMEP [Suspect]
     Dosage: 140 MG, QD
     Route: 048
     Dates: start: 20090209
  7. TORSEMIDE [Suspect]
     Dosage: 140 MG, QD
     Route: 048
     Dates: start: 20090209, end: 20090209

REACTIONS (5)
  - ATRIOVENTRICULAR BLOCK [None]
  - BRADYCARDIA [None]
  - DRUG ABUSE [None]
  - MULTIPLE DRUG OVERDOSE [None]
  - NAUSEA [None]
